FAERS Safety Report 6230268-0 (Version None)
Quarter: 2009Q2

REPORT INFORMATION
  Report Type: 
  Country: None (occurrence: None)
  Receive Date: 20090615
  Receipt Date: 20090606
  Transmission Date: 20091009
  Serious: Yes (Hospitalization, Other)
  Sender: FDA-Public Use
  Company Number: US-AMGEN-QUU350543

PATIENT
  Sex: Female

DRUGS (2)
  1. ENBREL [Suspect]
     Indication: RHEUMATOID ARTHRITIS
     Route: 058
  2. PLAQUENIL [Concomitant]
     Route: 048

REACTIONS (8)
  - ANAEMIA [None]
  - ARTHRITIS [None]
  - FATIGUE [None]
  - HYPERACUSIS [None]
  - MENORRHAGIA [None]
  - MENSTRUATION IRREGULAR [None]
  - PAIN [None]
  - UROSEPSIS [None]
